FAERS Safety Report 9789328 (Version 1)
Quarter: 2013Q4

REPORT INFORMATION
  Report Type: Spontaneous
  Country: GB (occurrence: GB)
  Receive Date: 20131231
  Receipt Date: 20131231
  Transmission Date: 20140711
  Serious: Yes (Other)
  Sender: FDA-Public Use
  Company Number: GB-ASTRAZENECA-2013SE93517

PATIENT
  Age: 45 Year
  Sex: Female
  Weight: 54 kg

DRUGS (6)
  1. SEROQUEL XL [Suspect]
     Indication: BIPOLAR DISORDER
     Route: 048
     Dates: start: 20131202
  2. SEROQUEL XL [Suspect]
     Indication: BIPOLAR DISORDER
     Route: 048
     Dates: end: 20131209
  3. COD LIVER OIL [Concomitant]
  4. DULOXETINE HYDROCHLORIDE [Concomitant]
  5. FLAX SEED OIL [Concomitant]
  6. OMEGA-3 FISH OIL [Concomitant]

REACTIONS (7)
  - Disorientation [Recovered/Resolved with Sequelae]
  - Distractibility [Recovered/Resolved with Sequelae]
  - Menorrhagia [Recovered/Resolved]
  - Nervousness [Recovering/Resolving]
  - Suicidal ideation [Recovered/Resolved with Sequelae]
  - Dysuria [Recovered/Resolved]
  - Chromaturia [Recovered/Resolved]
